FAERS Safety Report 5104883-1 (Version None)
Quarter: 2006Q3

REPORT INFORMATION
  Report Type: 
  Country: None (occurrence: None)
  Receive Date: 20060914
  Receipt Date: 20060907
  Transmission Date: 20061208
  Serious: Yes (Hospitalization)
  Sender: FDA-Public Use
  Company Number: 2006UW17580

PATIENT
  Age: 364 Month
  Sex: Female

DRUGS (5)
  1. SEROQUEL [Suspect]
     Route: 048
  2. PEGASYS [Suspect]
     Indication: HEPATITIS C VIRUS
     Dates: start: 20060621, end: 20060712
  3. COPEGUS [Suspect]
     Indication: HEPATITIS C VIRUS
     Dates: start: 20060621, end: 20060712
  4. ALBUTEROL [Concomitant]
  5. ZOLOFT [Concomitant]

REACTIONS (7)
  - AGITATION [None]
  - LOSS OF CONSCIOUSNESS [None]
  - OVERDOSE [None]
  - PLATELET COUNT DECREASED [None]
  - PNEUMONIA [None]
  - PULMONARY THROMBOSIS [None]
  - THROMBOSIS [None]
